FAERS Safety Report 8205749-0 (Version None)
Quarter: 2012Q1

REPORT INFORMATION
  Report Type: 
  Country: None (occurrence: None)
  Receive Date: 20120313
  Receipt Date: 20120312
  Transmission Date: 20120608
  Serious: Yes (Hospitalization, Other)
  Sender: FDA-Public Use
  Company Number: US-JNJFOC-20111012283

PATIENT
  Sex: Male

DRUGS (3)
  1. LEVAQUIN [Suspect]
     Route: 042
     Dates: start: 20110117
  2. PREDNISONE TAB [Suspect]
     Indication: PNEUMONIA
  3. LEVAQUIN [Suspect]
     Indication: PNEUMONIA
     Route: 048

REACTIONS (3)
  - LIVER INJURY [None]
  - CHOLESTASIS [None]
  - INJURY [None]
